FAERS Safety Report 15429919 (Version 1)
Quarter: 2018Q3

REPORT INFORMATION
  Report Type: Spontaneous
  Country: KR (occurrence: KR)
  Receive Date: 20180926
  Receipt Date: 20180926
  Transmission Date: 20181010
  Serious: Yes (Hospitalization, Other)
  Sender: FDA-Public Use
  Company Number: KR-ASTRAZENECA-2018SF23046

PATIENT
  Sex: Female

DRUGS (1)
  1. FASLODEX [Suspect]
     Active Substance: FULVESTRANT
     Indication: BREAST CANCER
     Route: 030

REACTIONS (5)
  - Ankle fracture [Unknown]
  - Dyspnoea [Unknown]
  - Hypokinesia [Unknown]
  - Metastases to lymph nodes [Unknown]
  - Metastases to liver [Unknown]
